FAERS Safety Report 6634824-7 (Version None)
Quarter: 2010Q1

REPORT INFORMATION
  Report Type: 
  Country: None (occurrence: None)
  Receive Date: 20100315
  Receipt Date: 20100312
  Transmission Date: 20100710
  Serious: Yes (Disabling)
  Sender: FDA-Public Use
  Company Number: US-MERCK-1003USA00476

PATIENT
  Age: 77 Year
  Sex: Female

DRUGS (17)
  1. FOSAMAX [Suspect]
     Indication: OSTEOPOROSIS
     Route: 048
     Dates: start: 20090501, end: 20090101
  2. LACTAID [Concomitant]
     Route: 065
  3. PRILOSEC [Concomitant]
     Route: 048
  4. PRILOSEC [Concomitant]
     Route: 048
  5. CENTRUM SILVER [Concomitant]
     Route: 065
  6. CALCIUM (UNSPECIFIED) AND VITAMIN D (UNSPECIFIED) [Concomitant]
     Route: 065
  7. SURFAK [Concomitant]
     Route: 065
  8. COLACE [Concomitant]
     Route: 065
  9. PERDIEM FIBER [Concomitant]
     Route: 065
  10. MIRALAX [Concomitant]
     Route: 065
  11. LIBRAX [Concomitant]
     Route: 065
  12. ALLEGRA [Concomitant]
     Route: 065
  13. PEPCID [Concomitant]
     Route: 065
  14. GASTROINTESTINAL PREPARATIONS (UNSPECIFIED) [Concomitant]
     Route: 065
  15. DARVOCET-N 100 [Concomitant]
     Route: 065
  16. XANAX [Concomitant]
     Route: 065
  17. REFRESH [Concomitant]
     Route: 065

REACTIONS (5)
  - GASTRITIS [None]
  - GASTROOESOPHAGEAL REFLUX DISEASE [None]
  - MALABSORPTION [None]
  - OESOPHAGEAL PAIN [None]
  - VITAMIN D DECREASED [None]
